FAERS Safety Report 14498234 (Version 2)
Quarter: 2018Q1

REPORT INFORMATION
  Report Type: Spontaneous
  Country: DE (occurrence: DE)
  Receive Date: 20180207
  Receipt Date: 20180216
  Transmission Date: 20180509
  Serious: No
  Sender: FDA-Public Use
  Company Number: DE-AMGEN-DEUSP2018012234

PATIENT
  Age: 70 Year
  Sex: Male
  Weight: 86 kg

DRUGS (3)
  1. IMLYGIC [Suspect]
     Active Substance: TALIMOGENE LAHERPAREPVEC
     Indication: MALIGNANT MELANOMA
     Dosage: 2 ML (1 MIO PFU/ML), UNK
     Route: 026
     Dates: start: 20180109
  2. RAMIPRIL. [Concomitant]
     Active Substance: RAMIPRIL
     Indication: HYPERTENSION
     Dosage: UNK UNK, QD
  3. L-THYROXIN [Concomitant]
     Active Substance: LEVOTHYROXINE SODIUM
     Indication: HYPOTHYROIDISM
     Dosage: UNK

REACTIONS (1)
  - Herpes simplex [Recovered/Resolved]

NARRATIVE: CASE EVENT DATE: 201801
